FAERS Safety Report 5990657-6 (Version None)
Quarter: 2008Q4

REPORT INFORMATION
  Report Type: 
  Country: None (occurrence: None)
  Receive Date: 20081211
  Receipt Date: 20081201
  Transmission Date: 20090506
  Serious: Yes (Hospitalization, Other)
  Sender: FDA-Public Use
  Company Number: PHHY2008JP30626

PATIENT
  Age: 81 Year
  Sex: Male

DRUGS (6)
  1. DIOVAN [Suspect]
     Indication: HYPERTENSION
     Dosage: 120 MG, QD
     Route: 048
     Dates: start: 20060628, end: 20081023
  2. DIOVAN [Suspect]
     Indication: CARDIAC FAILURE CHRONIC
  3. GASTER D [Suspect]
     Dosage: 20 MG DAILY
     Route: 048
     Dates: start: 20030903, end: 20081023
  4. ALLOPURINOL [Suspect]
     Dosage: 50 MG DAILY
     Route: 048
     Dates: start: 20021016, end: 20081023
  5. SIGMART [Concomitant]
     Dosage: 15 MG, UNK
     Route: 048
     Dates: start: 20041004, end: 20081023
  6. DIGOXIN [Concomitant]
     Dosage: 0.125 MG, UNK
     Route: 048
     Dates: start: 20060628

REACTIONS (8)
  - BLOOD CREATINE PHOSPHOKINASE INCREASED [None]
  - C-REACTIVE PROTEIN INCREASED [None]
  - DECREASED APPETITE [None]
  - GAIT DISTURBANCE [None]
  - MUSCULAR WEAKNESS [None]
  - PYREXIA [None]
  - RHABDOMYOLYSIS [None]
  - SUBDURAL HAEMATOMA [None]
